FAERS Safety Report 17935040 (Version 1)
Quarter: 2020Q2

REPORT INFORMATION
  Report Type: Spontaneous
  Country: US (occurrence: US)
  Receive Date: 20200624
  Receipt Date: 20200624
  Transmission Date: 20200714
  Serious: Yes (Death)
  Sender: FDA-Public Use
  Company Number: None

PATIENT
  Weight: 13.4 kg

DRUGS (9)
  1. ONCASPAR [Suspect]
     Active Substance: PEGASPARGASE
  2. THIOGUANINE (6-TG) [Suspect]
     Active Substance: THIOGUANINE ANHYDROUS
  3. DEXAMETHASONE. [Suspect]
     Active Substance: DEXAMETHASONE
  4. MERCAPTOPURINE. [Suspect]
     Active Substance: MERCAPTOPURINE
  5. METHOTREXATE. [Concomitant]
     Active Substance: METHOTREXATE
  6. DOXORUBICIN HYDROCHLORIDE. [Suspect]
     Active Substance: DOXORUBICIN HYDROCHLORIDE
  7. CYTARABINE. [Suspect]
     Active Substance: CYTARABINE
  8. VINCRISTINE SULFATE. [Suspect]
     Active Substance: VINCRISTINE SULFATE
  9. CYCLOPHOSPHAMIDE. [Suspect]
     Active Substance: CYCLOPHOSPHAMIDE

REACTIONS (6)
  - Vomiting [None]
  - Lethargy [None]
  - Apnoea [None]
  - Cough [None]
  - Dyspnoea [None]
  - Unresponsive to stimuli [None]

NARRATIVE: CASE EVENT DATE: 20180713
